FAERS Safety Report 4308210-9 (Version None)
Quarter: 2004Q1

REPORT INFORMATION
  Report Type: 
  Country: None (occurrence: None)
  Receive Date: 20040301
  Receipt Date: 20030826
  Transmission Date: 20041129
  Serious: No
  Sender: FDA-Public Use
  Company Number: US-BRISTOL-MYERS SQUIBB COMPANY-12366266

PATIENT
  Age: 66 Year
  Sex: Female
  Weight: 95 kg

DRUGS (4)
  1. GLUCOPHAGE [Suspect]
     Indication: DIABETES MELLITUS
     Dosage: DURATION OF THERAPY:  ^5-6 WEEKS^
     Route: 048
  2. GLYBURIDE [Concomitant]
  3. TRIAMTERENE [Concomitant]
  4. ZESTRIL [Concomitant]

REACTIONS (2)
  - ANOREXIA [None]
  - HYPOGLYCAEMIA [None]
